FAERS Safety Report 5851874-9 (Version None)
Quarter: 2008Q3

REPORT INFORMATION
  Report Type: 
  Country: None (occurrence: None)
  Receive Date: 20080819
  Receipt Date: 20080806
  Transmission Date: 20090109
  Serious: Yes (Hospitalization)
  Sender: FDA-Public Use
  Company Number: 2008-02613

PATIENT
  Age: 54 Year
  Sex: Female
  Weight: 48 kg

DRUGS (5)
  1. VELCADE [Suspect]
     Indication: MULTIPLE MYELOMA
     Dosage: 1 MG/M2, UNK, INTRAVENOUS
     Route: 042
     Dates: start: 20080422
  2. DEXAMETHASONE TAB [Suspect]
     Indication: MULTIPLE MYELOMA
     Dosage: 40 MG UNK ORAL
     Route: 048
     Dates: start: 20080422
  3. NEURONTIN [Concomitant]
  4. LEXOMIL (BROMAZEPAM) [Concomitant]
  5. OXYCONTIN (OXYCODONE HYDROCODONE) [Concomitant]

REACTIONS (1)
  - PANIC ATTACK [None]
